FAERS Safety Report 23674999 (Version 3)
Quarter: 2024Q2

REPORT INFORMATION
  Report Type: Spontaneous
  Country: RO (occurrence: RO)
  Receive Date: 20240326
  Receipt Date: 20240514
  Transmission Date: 20240716
  Serious: Yes (Hospitalization, Other)
  Sender: FDA-Public Use
  Company Number: RO-009507513-2403ROU007077

PATIENT
  Age: 52 Year
  Sex: Female

DRUGS (4)
  1. PEMBROLIZUMAB [Suspect]
     Active Substance: PEMBROLIZUMAB
     Indication: Clear cell renal cell carcinoma
     Dosage: 400 MILLIGRAM, EVERY 6 WEEKS
  2. PEMBROLIZUMAB [Suspect]
     Active Substance: PEMBROLIZUMAB
     Indication: Metastases to bone
  3. BELZUTIFAN [Suspect]
     Active Substance: BELZUTIFAN
     Indication: Clear cell renal cell carcinoma
     Dosage: 120 MILLIGRAM A DAY
     Route: 048
  4. BELZUTIFAN [Suspect]
     Active Substance: BELZUTIFAN
     Indication: Metastases to bone

REACTIONS (2)
  - Immune-mediated hepatic disorder [Recovering/Resolving]
  - Product use issue [Unknown]
